FAERS Safety Report 21773274 (Version 1)
Quarter: 2022Q4

REPORT INFORMATION
  Report Type: Spontaneous
  Country: US (occurrence: US)
  Receive Date: 20221223
  Receipt Date: 20221223
  Transmission Date: 20230112
  Serious: Yes (Other)
  Sender: FDA-Public Use
  Company Number: US-002147023-NVSC2022US295186

PATIENT
  Age: 68 Year
  Sex: Male

DRUGS (3)
  1. ARZERRA [Suspect]
     Active Substance: OFATUMUMAB
     Indication: Chronic lymphocytic leukaemia recurrent
     Dosage: FIVE INITIAL CYCLES
     Route: 065
  2. ARZERRA [Suspect]
     Active Substance: OFATUMUMAB
     Dosage: 12 CYCLES OF OFATUMUMAB TO BE ADMINISTERED EVERY 8 WEEKS FOR 2 YEARS
     Route: 065
  3. CAFFEINE [Concomitant]
     Active Substance: CAFFEINE
     Indication: Product used for unknown indication
     Dosage: CAFFEINATED DRINKS
     Route: 065

REACTIONS (1)
  - Ventricular extrasystoles [Recovered/Resolved]
